FAERS Safety Report 15231661 (Version 2)
Quarter: 2018Q4

REPORT INFORMATION
  Report Type: Spontaneous
  Country: CA (occurrence: CA)
  Receive Date: 20180802
  Receipt Date: 20181003
  Transmission Date: 20190204
  Serious: Yes (Other)
  Sender: FDA-Public Use
  Company Number: CA-GLAXOSMITHKLINE-CA2018GSK133242

PATIENT
  Sex: Female

DRUGS (1)
  1. BENLYSTA [Suspect]
     Active Substance: BELIMUMAB
     Indication: SYSTEMIC LUPUS ERYTHEMATOSUS
     Dosage: 850 MG, UNK
     Route: 042

REACTIONS (5)
  - Systemic lupus erythematosus [Unknown]
  - Malaise [Recovering/Resolving]
  - Fatigue [Unknown]
  - Disability [Unknown]
  - Asthenia [Unknown]
